FAERS Safety Report 5258916-2 (Version None)
Quarter: 2007Q1

REPORT INFORMATION
  Report Type: 
  Country: None (occurrence: None)
  Receive Date: 20070305
  Receipt Date: 20070222
  Transmission Date: 20070707
  Serious: Yes (Other)
  Sender: FDA-Public Use
  Company Number: SPV1-2006-00856

PATIENT
  Age: 62 Year
  Sex: Female

DRUGS (3)
  1. PENTASA [Suspect]
     Indication: IRRITABLE BOWEL SYNDROME
     Dosage: 2 CAPSULES TWICE DAILY
     Dates: start: 20030101
  2. LIBRAX [Suspect]
     Indication: IRRITABLE BOWEL SYNDROME
  3. LIPITOR [Concomitant]

REACTIONS (5)
  - ANXIETY [None]
  - CEREBROVASCULAR ACCIDENT [None]
  - FAMILY STRESS [None]
  - NAUSEA [None]
  - STOMACH DISCOMFORT [None]
